FAERS Safety Report 11701409 (Version 3)
Quarter: 2019Q3

REPORT INFORMATION
  Report Type: Spontaneous
  Country: US (occurrence: US)
  Receive Date: 20151105
  Receipt Date: 20190919
  Transmission Date: 20191004
  Serious: Yes (Hospitalization)
  Sender: FDA-Public Use
  Company Number: US-JNJFOC-20151101961

PATIENT
  Age: 81 Year
  Sex: Male
  Weight: 69.46 kg

DRUGS (5)
  1. LISINOPRIL. [Concomitant]
     Active Substance: LISINOPRIL
     Indication: CARDIAC DISORDER
     Route: 065
  2. XARELTO [Suspect]
     Active Substance: RIVAROXABAN
     Indication: CEREBROVASCULAR ACCIDENT PROPHYLAXIS
  3. ALLOPURINOL. [Concomitant]
     Active Substance: ALLOPURINOL
     Indication: GOUT
     Route: 065
     Dates: start: 201501
  4. XARELTO [Suspect]
     Active Substance: RIVAROXABAN
     Indication: ATRIAL FIBRILLATION
     Route: 048
     Dates: start: 201409, end: 20160415
  5. OXYTOCIN. [Concomitant]
     Active Substance: OXYTOCIN
     Indication: PROSTATIC DISORDER
     Route: 065

REACTIONS (5)
  - Heart rate decreased [Recovered/Resolved]
  - Hypotension [Not Recovered/Not Resolved]
  - Epistaxis [Unknown]
  - Inappropriate schedule of product administration [Unknown]
  - Cerebrovascular accident [Unknown]

NARRATIVE: CASE EVENT DATE: 201409
